FAERS Safety Report 18309841 (Version 2)
Quarter: 2021Q3

REPORT INFORMATION
  Report Type: Spontaneous
  Country: US (occurrence: BR)
  Receive Date: 20200924
  Receipt Date: 20210923
  Transmission Date: 20211014
  Serious: Yes (Disabling, Other)
  Sender: FDA-Public Use
  Company Number: BR-BIOMARINAP-BR-2020-132456

PATIENT
  Age: 47 Year
  Sex: Female
  Weight: 48 kg

DRUGS (2)
  1. ALDURAZYME [Suspect]
     Active Substance: LARONIDASE
     Indication: MUCOPOLYSACCHARIDOSIS I
     Dosage: UNK, Q15D
     Route: 042
     Dates: start: 20090101
  2. ALDURAZYME [Suspect]
     Active Substance: LARONIDASE
     Dosage: UNK
     Route: 042
     Dates: start: 20091020

REACTIONS (19)
  - Condition aggravated [Recovering/Resolving]
  - Paraesthesia [Recovered/Resolved]
  - Ear swelling [Recovered/Resolved]
  - Unevaluable event [Recovering/Resolving]
  - Intentional dose omission [Unknown]
  - Condition aggravated [Recovering/Resolving]
  - Pharyngeal swelling [Recovered/Resolved]
  - Loss of personal independence in daily activities [Recovering/Resolving]
  - Umbilical hernia [Recovering/Resolving]
  - Product use issue [Unknown]
  - Cardiac disorder [Recovering/Resolving]
  - Abdominal pain upper [Recovered/Resolved]
  - Mobility decreased [Recovering/Resolving]
  - Glaucoma [Recovering/Resolving]
  - Swelling face [Recovered/Resolved]
  - Pain [Recovering/Resolving]
  - Decreased appetite [Recovering/Resolving]
  - Eye swelling [Recovered/Resolved]
  - Urticaria [Recovered/Resolved]

NARRATIVE: CASE EVENT DATE: 201806
